FAERS Safety Report 9241148 (Version 1)
Quarter: 2013Q1

REPORT INFORMATION
  Report Type: Spontaneous
  Country: US (occurrence: None)
  Receive Date: 20121120
  Receipt Date: 20121120
  Transmission Date: 20140127
  Serious: No
  Sender: FDA-Public Use
  Company Number: 1000039178

PATIENT
  Age: 87 Year
  Sex: Male

DRUGS (3)
  1. VIIBRYD [Suspect]
  2. AMBIEN (ZOLPIDEM TARTRATE) (ZOLEPIDEM TARTRATE) [Concomitant]
  3. REMERON (MIRTAZAPINE) (MIRTAZAPINE) [Concomitant]

REACTIONS (4)
  - Aggression [None]
  - Agitation [None]
  - Anger [None]
  - Mania [None]
